FAERS Safety Report 23165148 (Version 1)
Quarter: 2023Q4

REPORT INFORMATION
  Report Type: Spontaneous
  Country: GB (occurrence: GB)
  Receive Date: 20231109
  Receipt Date: 20231109
  Transmission Date: 20240109
  Serious: Yes (Death, Disabling)
  Sender: FDA-Public Use
  Company Number: GB-ABBVIE-5489027

PATIENT
  Sex: Male

DRUGS (1)
  1. DEPAKOTE [Suspect]
     Active Substance: DIVALPROEX SODIUM
     Indication: Product used for unknown indication
     Route: 065

REACTIONS (2)
  - Pyrexia [Fatal]
  - Medication error [Unknown]

NARRATIVE: CASE EVENT DATE: 20231101
